FAERS Safety Report 8445880-8 (Version None)
Quarter: 2012Q2

REPORT INFORMATION
  Report Type: 
  Country: None (occurrence: None)
  Receive Date: 20120618
  Receipt Date: 20120614
  Transmission Date: 20120825
  Serious: Yes (Other)
  Sender: FDA-Public Use
  Company Number: PHHY2012BR012427

PATIENT
  Sex: Female

DRUGS (2)
  1. SYNTHROID [Concomitant]
     Indication: HYPOTHYROIDISM
  2. DIOVAN HCT [Suspect]
     Indication: BLOOD PRESSURE FLUCTUATION
     Dosage: 1 DF (VALS 160 MG, HYDR 12.5 MG),DAILY AT MORNING
     Route: 048
     Dates: start: 20050101

REACTIONS (4)
  - BREAST CANCER [None]
  - SWELLING [None]
  - CARDIOVASCULAR DISORDER [None]
  - PAIN IN EXTREMITY [None]
